FAERS Safety Report 20585082 (Version 3)
Quarter: 2022Q2

REPORT INFORMATION
  Report Type: Spontaneous
  Country: US (occurrence: None)
  Receive Date: 20220311
  Receipt Date: 20220426
  Transmission Date: 20220720
  Serious: Yes (Hospitalization, Other)
  Sender: FDA-Public Use
  Company Number: 2022A099659

PATIENT
  Age: 796 Month
  Sex: Male
  Weight: 76.2 kg

DRUGS (10)
  1. EVUSHELD [Suspect]
     Active Substance: CILGAVIMAB\TIXAGEVIMAB
     Indication: Chronic lymphocytic leukaemia
     Dosage: 150MG/1.5ML TIXAGEVIMAB/150MG/1.5ML CILGAVIMAB ONCE/SINGLE ADMINISTRATION
     Route: 030
     Dates: start: 20220119
  2. CALQUENCE [Suspect]
     Active Substance: ACALABRUTINIB
     Indication: Chronic lymphocytic leukaemia
     Route: 048
     Dates: start: 202103, end: 202109
  3. RITUXAN [Concomitant]
     Active Substance: RITUXIMAB
  4. VENCLEXTA [Concomitant]
     Active Substance: VENETOCLAX
  5. VALTREX [Concomitant]
     Active Substance: VALACYCLOVIR HYDROCHLORIDE
  6. METOPROLOL SUCCINATE [Concomitant]
     Active Substance: METOPROLOL SUCCINATE
  7. PEPCID [Concomitant]
     Active Substance: FAMOTIDINE
  8. ALLOPURINOL [Concomitant]
     Active Substance: ALLOPURINOL
  9. ELIQUIS [Concomitant]
     Active Substance: APIXABAN
  10. FOLIC ACID [Concomitant]
     Active Substance: FOLIC ACID

REACTIONS (2)
  - Haemolytic anaemia [Unknown]
  - Leukopenia [Not Recovered/Not Resolved]

NARRATIVE: CASE EVENT DATE: 20210901
